FAERS Safety Report 17216077 (Version 3)
Quarter: 2020Q1

REPORT INFORMATION
  Report Type: Report from Study
  Country: EG (occurrence: EG)
  Receive Date: 20191230
  Receipt Date: 20200127
  Transmission Date: 20200409
  Serious: Yes (Hospitalization, Other)
  Sender: FDA-Public Use
  Company Number: EG-APOPHARMA-2019AP026716

PATIENT
  Age: 3 Year
  Sex: Male
  Weight: 13 kg

DRUGS (6)
  1. DEFERIPRONE [Suspect]
     Active Substance: DEFERIPRONE
     Dosage: 50 MG/KG, QD
     Route: 048
     Dates: start: 20191204, end: 20191218
  2. FOLIC ACID. [Concomitant]
     Active Substance: FOLIC ACID
     Indication: ERYTHROPOIESIS ABNORMAL
     Dosage: 5 MG, QD
     Route: 048
     Dates: start: 20190819
  3. L-CARNITINE                        /00878601/ [Concomitant]
     Active Substance: LEVOCARNITINE
     Indication: QUALITY OF LIFE DECREASED
     Dosage: 300 MG, QD
     Route: 048
     Dates: start: 20190819
  4. DEFERIPRONE [Suspect]
     Active Substance: DEFERIPRONE
     Indication: THALASSAEMIA BETA
     Dosage: 25 MG/KG, QD
     Route: 048
     Dates: start: 20190925, end: 20191009
  5. DEFERIPRONE [Suspect]
     Active Substance: DEFERIPRONE
     Dosage: 50 MG/KG, QD
     Route: 048
     Dates: start: 20191009, end: 20191119
  6. CALCIUM [Concomitant]
     Active Substance: CALCIUM
     Indication: OSTEOPOROSIS PROPHYLAXIS
     Dosage: 5 ML, QD
     Route: 048
     Dates: start: 20190819

REACTIONS (1)
  - Agranulocytosis [Recovered/Resolved]

NARRATIVE: CASE EVENT DATE: 20191217
